FAERS Safety Report 19178963 (Version 2)
Quarter: 2021Q2

REPORT INFORMATION
  Report Type: Spontaneous
  Country: CA (occurrence: CA)
  Receive Date: 20210426
  Receipt Date: 20210503
  Transmission Date: 20210717
  Serious: Yes (Other)
  Sender: FDA-Public Use
  Company Number: CA-PFIZER INC-2021081545

PATIENT
  Age: 67 Year
  Sex: Female

DRUGS (18)
  1. FOLIC ACID. [Concomitant]
     Active Substance: FOLIC ACID
     Dosage: 1 DF, UNK DOSE
  2. CORTISONE [Concomitant]
     Active Substance: CORTISONE
     Dosage: 6 MG, (TAPERED DOWN TO 5MG 18MAR2021)
  3. CORTISONE [Concomitant]
     Active Substance: CORTISONE
     Dosage: 10 MG 1X/DAY.12MG FOR 2 DAYS, 11MG 2 DAYS FOR REGULAR DOSAGE 10MG
  4. HYDROXYCHLOROQUINE [Concomitant]
     Active Substance: HYDROXYCHLOROQUINE
     Dosage: 200 MG, 1X/DAY
     Route: 065
     Dates: start: 202009
  5. PREDNISONE. [Concomitant]
     Active Substance: PREDNISONE
     Dosage: 7 MG TAPER
     Dates: start: 2013
  6. CORTISONE [Concomitant]
     Active Substance: CORTISONE
     Dosage: 6 MG, 1X/DAY
     Dates: start: 20210319
  7. ACTONEL [Concomitant]
     Active Substance: RISEDRONATE SODIUM
     Dosage: 1 DF, UNK DOSE
  8. XELJANZ [Suspect]
     Active Substance: TOFACITINIB CITRATE
     Indication: RHEUMATOID ARTHRITIS
     Dosage: 5 MG, 1X/DAY
     Route: 048
     Dates: start: 2015
  9. XELJANZ [Suspect]
     Active Substance: TOFACITINIB CITRATE
     Dosage: 5 MG, 1X/DAY
     Route: 048
     Dates: start: 20210119, end: 202104
  10. ESTRADOT [Concomitant]
     Active Substance: ESTRADIOL
     Dosage: 1 DF, UNK DOSE
  11. PREDNISONE. [Concomitant]
     Active Substance: PREDNISONE
     Dosage: 6 MG, DAILY (6 MG/DAY X 1 MONTH)
     Dates: start: 20210119
  12. PREDNISONE. [Concomitant]
     Active Substance: PREDNISONE
     Dosage: 10 MG
     Dates: start: 20210416
  13. PLAQUENIL [Concomitant]
     Active Substance: HYDROXYCHLOROQUINE SULFATE
     Dosage: 200 MG, 1X/DAY
  14. METHOTREXATE. [Concomitant]
     Active Substance: METHOTREXATE
     Dosage: 25 MG
     Dates: start: 2015
  15. STATEX [MORPHINE SULFATE] [Concomitant]
     Active Substance: MORPHINE SULFATE
     Dosage: 1 DF, UNK DOSE
  16. XELJANZ [Suspect]
     Active Substance: TOFACITINIB CITRATE
     Dosage: 5 MG, 1X/DAY
     Route: 048
     Dates: start: 2021
  17. ATIVAN [Concomitant]
     Active Substance: LORAZEPAM
     Dosage: 1 DF, UNK DOSE
  18. PANTOLOC [PANTOPRAZOLE] [Concomitant]
     Active Substance: PANTOPRAZOLE SODIUM
     Dosage: 1 DF, UNK DOSE

REACTIONS (9)
  - Therapeutic product effect incomplete [Not Recovered/Not Resolved]
  - Hypotension [Unknown]
  - Nausea [Unknown]
  - Dizziness [Unknown]
  - Rheumatoid arthritis [Not Recovered/Not Resolved]
  - Abdominal pain [Unknown]
  - Adrenal insufficiency [Unknown]
  - Asthenia [Unknown]
  - Chest discomfort [Unknown]

NARRATIVE: CASE EVENT DATE: 20210309
